FAERS Safety Report 24182525 (Version 2)
Quarter: 2024Q3

REPORT INFORMATION
  Report Type: Spontaneous
  Country: US (occurrence: US)
  Receive Date: 20240807
  Receipt Date: 20240809
  Transmission Date: 20241016
  Serious: Yes (Death, Hospitalization, Other)
  Sender: APOTEX
  Company Number: US-APOTEX-2024AP009079

PATIENT
  Age: 66 Year
  Sex: Male

DRUGS (1)
  1. DABIGATRAN [Suspect]
     Active Substance: DABIGATRAN
     Indication: Pulmonary hypertension
     Dosage: 150 MILLIGRAM, BID
     Route: 048

REACTIONS (4)
  - Hypotension [Fatal]
  - Agonal respiration [Fatal]
  - Condition aggravated [Fatal]
  - Haemoptysis [Fatal]
